FAERS Safety Report 7183822-6 (Version None)
Quarter: 2010Q4

REPORT INFORMATION
  Report Type: 
  Country: None (occurrence: None)
  Receive Date: 20101222
  Receipt Date: 20090410
  Transmission Date: 20110411
  Serious: Yes (Hospitalization)
  Sender: FDA-Public Use
  Company Number: IT-ROCHE-626995

PATIENT
  Sex: Female
  Weight: 68 kg

DRUGS (10)
  1. KYTRIL [Suspect]
     Route: 065
     Dates: start: 20090316, end: 20090318
  2. BEVACIZUMAB [Suspect]
     Dosage: THERAPY TEMPORARILY INTERRUPTED.
     Route: 042
     Dates: start: 20090315, end: 20090315
  3. OXALIPLATINE [Suspect]
     Route: 042
     Dates: start: 20090315, end: 20090315
  4. CAPECITABINE [Suspect]
     Dosage: THERAPY TEMORARILY INTERRUPTED.
     Route: 048
     Dates: start: 20090315, end: 20090329
  5. BLOPRESID [Concomitant]
     Dates: start: 20090103
  6. NAVOBAN [Concomitant]
     Dosage: TOTAL DAILY DOSE: 5MG/5ML
     Dates: start: 20090109
  7. MEPRAL [Concomitant]
     Dates: start: 20090109
  8. FLEBOCORTID [Concomitant]
     Dates: start: 20090109, end: 20090109
  9. TRIMETON [Concomitant]
     Dosage: TOTAL DAILY DOSE; 1ML/10MG
     Dates: start: 20090109
  10. SOLDESAM [Concomitant]
     Dates: start: 20090130

REACTIONS (1)
  - SUBILEUS [None]
